FAERS Safety Report 12395729 (Version 2)
Quarter: 2016Q2

REPORT INFORMATION
  Report Type: Spontaneous
  Country: JP (occurrence: JP)
  Receive Date: 20160523
  Receipt Date: 20160617
  Transmission Date: 20160815
  Serious: Yes (Hospitalization, Other)
  Sender: FDA-Public Use
  Company Number: US-ASTRAZENECA-2016SE54779

PATIENT
  Age: 70 Year
  Sex: Male

DRUGS (7)
  1. BLOPRESS [Suspect]
     Active Substance: CANDESARTAN CILEXETIL
     Indication: HYPERTENSION
     Dosage: 4.0MG UNKNOWN
     Route: 048
  2. BLOPRESS [Suspect]
     Active Substance: CANDESARTAN CILEXETIL
     Indication: HYPERTENSION
     Dosage: 8.0MG UNKNOWN
     Route: 048
  3. AZELNIDIPINE [Concomitant]
     Active Substance: AZELNIDIPINE
     Dosage: 16.0MG UNKNOWN
     Route: 048
  4. BISOPROLOL FUMARATE. [Concomitant]
     Active Substance: BISOPROLOL FUMARATE
     Dosage: 2.5MG UNKNOWN
     Route: 048
  5. AZELNIDIPINE [Concomitant]
     Active Substance: AZELNIDIPINE
     Dosage: 16.0MG UNKNOWN
     Route: 048
  6. BISOPROLOL FUMARATE. [Concomitant]
     Active Substance: BISOPROLOL FUMARATE
     Dosage: 5.0MG UNKNOWN
     Route: 048
  7. AZELNIDIPINE [Concomitant]
     Active Substance: AZELNIDIPINE
     Dosage: 8.0MG UNKNOWN
     Route: 048

REACTIONS (2)
  - Cardiac failure congestive [Unknown]
  - Blood creatinine increased [Recovering/Resolving]
